FAERS Safety Report 8618048-X (Version None)
Quarter: 2012Q3

REPORT INFORMATION
  Report Type: 
  Country: None (occurrence: None)
  Receive Date: 20120824
  Receipt Date: 20120320
  Transmission Date: 20120928
  Serious: No
  Sender: FDA-Public Use
  Company Number: US-ASTRAZENECA-2012SE08388

PATIENT
  Age: 79 Year
  Sex: Female

DRUGS (8)
  1. THYROID TAB [Concomitant]
  2. SYMBICORT [Suspect]
     Indication: BRONCHIECTASIS
     Dosage: 160/4.5 MCG, TWICE A DAY
     Route: 055
  3. SYMBICORT [Suspect]
     Dosage: 160/4.5 MCG, DAILY
     Route: 055
     Dates: start: 20100101
  4. FLUID PILL [Concomitant]
  5. SYMBICORT [Suspect]
     Indication: ASTHMA
     Dosage: 160/4.5 MCG, TWICE A DAY
     Route: 055
  6. SYMBICORT [Suspect]
     Dosage: 160/4.5 MCG, DAILY
     Route: 055
     Dates: start: 20100101
  7. PILL FOR HERPES [Concomitant]
     Indication: HERPES VIRUS INFECTION
  8. COZAAR [Concomitant]

REACTIONS (5)
  - INTENTIONAL DRUG MISUSE [None]
  - VISUAL IMPAIRMENT [None]
  - COUGH [None]
  - ULCERATIVE KERATITIS [None]
  - HERPES OPHTHALMIC [None]
